FAERS Safety Report 26157101 (Version 1)
Quarter: 2025Q4

REPORT INFORMATION
  Report Type: Spontaneous
  Country: US (occurrence: None)
  Receive Date: 20251212
  Receipt Date: 20251212
  Transmission Date: 20260118
  Serious: Yes (Other)
  Sender: FDA-CTU
  Company Number: None

PATIENT
  Age: 32 Year
  Sex: Female
  Weight: 60 kg

DRUGS (1)
  1. IRON SUCROSE [Suspect]
     Active Substance: IRON SUCROSE
     Indication: Iron deficiency
     Dosage: OTHER FREQUENCY : ONCE;
     Route: 040
     Dates: start: 20251208, end: 20251208

REACTIONS (9)
  - Hypoaesthesia [None]
  - Hypoaesthesia [None]
  - Urticaria [None]
  - Nausea [None]
  - Burning sensation [None]
  - Hyperhidrosis [None]
  - Epigastric discomfort [None]
  - Loss of consciousness [None]
  - Hypotension [None]

NARRATIVE: CASE EVENT DATE: 20251208
